FAERS Safety Report 13246643 (Version 1)
Quarter: 2017Q1

REPORT INFORMATION
  Report Type: Spontaneous
  Country: US (occurrence: US)
  Receive Date: 20170217
  Receipt Date: 20170217
  Transmission Date: 20170428
  Serious: Yes (Life-Threatening, Disabling, Other)
  Sender: FDA-Public Use
  Company Number: US-009507513-1702USA005767

PATIENT
  Age: 57 Year
  Sex: Female
  Weight: 105.22 kg

DRUGS (32)
  1. CINNAMON. [Concomitant]
     Active Substance: CINNAMON
  2. VERUM [Concomitant]
  3. LIDODERM [Concomitant]
     Active Substance: LIDOCAINE
  4. LATANOPROST. [Concomitant]
     Active Substance: LATANOPROST
  5. TRAMADOL HYDROCHLORIDE. [Concomitant]
     Active Substance: TRAMADOL HYDROCHLORIDE
  6. DOCUSATE SODIUM. [Concomitant]
     Active Substance: DOCUSATE SODIUM
  7. KELP [Concomitant]
     Active Substance: KELP
  8. BOVINE PITUITARY [Concomitant]
  9. FOLIC ACID. [Concomitant]
     Active Substance: FOLIC ACID
  10. MUCINEX [Concomitant]
     Active Substance: GUAIFENESIN
  11. MILK THISTLE [Concomitant]
     Active Substance: MILK THISTLE
  12. ZINC (UNSPECIFIED) [Concomitant]
  13. INOSITOL [Concomitant]
     Active Substance: INOSITOL
  14. CHOLECALCIFEROL [Concomitant]
     Active Substance: CHOLECALCIFEROL
  15. JANUVIA [Suspect]
     Active Substance: SITAGLIPTIN PHOSPHATE
     Indication: PRODUCT USED FOR UNKNOWN INDICATION
     Route: 048
  16. ERYTHROMYCIN. [Concomitant]
     Active Substance: ERYTHROMYCIN
  17. POTASSIUM IODIDE. [Concomitant]
     Active Substance: POTASSIUM IODIDE
  18. IRON (UNSPECIFIED) [Concomitant]
     Active Substance: IRON
  19. THYROID [Concomitant]
     Active Substance: LEVOTHYROXINE\LIOTHYRONINE
  20. ORLISTAT [Concomitant]
     Active Substance: ORLISTAT
  21. GERITOL COMPLETE [Concomitant]
  22. CALCIUM (UNSPECIFIED) (+) VITAMIN D (UNSPECIFIED) [Concomitant]
     Active Substance: CALCIUM CARBONATE\VITAMIN D
  23. ASPIRIN. [Concomitant]
     Active Substance: ASPIRIN
     Route: 048
  24. CRANBERRY. [Concomitant]
     Active Substance: CRANBERRY
  25. CYCLOBENZAPRINE HYDROCHLORIDE. [Concomitant]
     Active Substance: CYCLOBENZAPRINE HYDROCHLORIDE
  26. ALLEGRA [Concomitant]
     Active Substance: FEXOFENADINE HYDROCHLORIDE
  27. GINKGO [Concomitant]
     Active Substance: GINKGO
  28. HYDROCHLORTHIAZID [Concomitant]
     Active Substance: HYDROCHLOROTHIAZIDE
  29. CAPSICUM [Concomitant]
     Active Substance: CAPSICUM
  30. ASTRAGALUS [Concomitant]
  31. POLYETHYLENE GLYCOL 3350. [Concomitant]
     Active Substance: POLYETHYLENE GLYCOL 3350
  32. 5-LOXIN [Concomitant]

REACTIONS (10)
  - Bone pain [Not Recovered/Not Resolved]
  - Constipation [Not Recovered/Not Resolved]
  - Asthenia [Not Recovered/Not Resolved]
  - Internal haemorrhage [Not Recovered/Not Resolved]
  - Headache [Not Recovered/Not Resolved]
  - Suicidal ideation [Not Recovered/Not Resolved]
  - Dehydration [Not Recovered/Not Resolved]
  - Diarrhoea [Not Recovered/Not Resolved]
  - Gastritis [Not Recovered/Not Resolved]
  - Renal pain [Not Recovered/Not Resolved]

NARRATIVE: CASE EVENT DATE: 20150102
